FAERS Safety Report 22015439 (Version 1)
Quarter: 2023Q1

REPORT INFORMATION
  Report Type: Spontaneous
  Country: DE (occurrence: None)
  Receive Date: 20230221
  Receipt Date: 20230221
  Transmission Date: 20230418
  Serious: Yes (Hospitalization, Other)
  Sender: FDA-Public Use
  Company Number: 2023A040786

PATIENT
  Sex: Male

DRUGS (8)
  1. BEVESPI AEROSPHERE [Suspect]
     Active Substance: FORMOTEROL FUMARATE\GLYCOPYRROLATE
     Route: 055
  2. THEOPHYLLINE ANHYDROUS [Concomitant]
     Active Substance: THEOPHYLLINE ANHYDROUS
  3. PREDNISOLONE [Concomitant]
     Active Substance: PREDNISOLONE
  4. FLUTICASONE PROPIONATE\SALMETEROL XINAFOATE [Concomitant]
     Active Substance: FLUTICASONE PROPIONATE\SALMETEROL XINAFOATE
  5. BUDESONIDE DA [Concomitant]
     Dosage: IF NEEDED
  6. AFONILUM NOVO [Concomitant]
     Dosage: IF NEEDED
  7. SALBUTRAMOL [Concomitant]
  8. AFPRED AMP [Concomitant]
     Dosage: IF NEEDED

REACTIONS (11)
  - Cardiac failure [Unknown]
  - Ejection fraction decreased [Unknown]
  - Chronic obstructive pulmonary disease [Unknown]
  - Spinal osteoarthritis [Unknown]
  - Obesity [Unknown]
  - Cardio-respiratory distress [Unknown]
  - Atrial fibrillation [Unknown]
  - Hypertension [Unknown]
  - Depression [Unknown]
  - Impaired fasting glucose [Unknown]
  - Obstructive sleep apnoea syndrome [Unknown]
